FAERS Safety Report 25467831 (Version 1)
Quarter: 2025Q2

REPORT INFORMATION
  Report Type: Spontaneous
  Country: GB (occurrence: None)
  Receive Date: 20250623
  Receipt Date: 20250623
  Transmission Date: 20250716
  Serious: Yes (Disabling)
  Sender: FDA-CTU
  Company Number: None

PATIENT
  Age: 49 Year
  Sex: Female

DRUGS (2)
  1. ESCITALOPRAM [Suspect]
     Active Substance: ESCITALOPRAM OXALATE
     Dates: start: 20160402, end: 20230214
  2. LEVOTHYROXINE [Concomitant]
     Active Substance: LEVOTHYROXINE

REACTIONS (27)
  - Diaphragmatic disorder [None]
  - Discomfort [None]
  - Hyperventilation [None]
  - Dyspnoea [None]
  - Myalgia [None]
  - Muscle tightness [None]
  - Plantar fasciitis [None]
  - Sensory disturbance [None]
  - Fatigue [None]
  - Tremor [None]
  - Exercise tolerance increased [None]
  - Insomnia [None]
  - Restless legs syndrome [None]
  - Therapy interrupted [None]
  - Dyskinesia [None]
  - Electric shock sensation [None]
  - Muscle spasms [None]
  - Tremor [None]
  - Headache [None]
  - Vision blurred [None]
  - Skin burning sensation [None]
  - Nervous system disorder [None]
  - Withdrawal syndrome [None]
  - Abdominal rigidity [None]
  - Loss of personal independence in daily activities [None]
  - Quality of life decreased [None]
  - Feeling of despair [None]

NARRATIVE: CASE EVENT DATE: 20160504
